FAERS Safety Report 19467342 (Version 1)
Quarter: 2021Q2

REPORT INFORMATION
  Report Type: Spontaneous
  Country: US (occurrence: US)
  Receive Date: 20210626
  Receipt Date: 20210626
  Transmission Date: 20210717
  Serious: Yes (Other)
  Sender: FDA-Public Use
  Company Number: None

PATIENT
  Age: 57 Year
  Sex: Female
  Weight: 81 kg

DRUGS (13)
  1. GOLYTELY [Suspect]
     Active Substance: POLYETHYLENE GLYCOL 3350\POTASSIUM CHLORIDE\SODIUM BICARBONATE\SODIUM CHLORIDE\SODIUM SULFATE
     Indication: COLONOSCOPY
     Dosage: ?          QUANTITY:8 OUNCE(S);OTHER FREQUENCY:EVERY 10 MINUTES;?
     Route: 048
     Dates: start: 20210620, end: 20210620
  2. TRIAMCINOLON [Concomitant]
  3. AZELASTINE EYE DROPS [Concomitant]
  4. CALCIUM [Concomitant]
     Active Substance: CALCIUM
  5. SYMBICORT [Concomitant]
     Active Substance: BUDESONIDE\FORMOTEROL FUMARATE DIHYDRATE
  6. ALLEGRA [Concomitant]
     Active Substance: FEXOFENADINE HYDROCHLORIDE
  7. CARBINOXAMINE [Concomitant]
     Active Substance: CARBINOXAMINE
  8. VITAMINS  C, D3, E, B COMPLEX [Concomitant]
  9. IMMUNOTHERAPY ? SUBCUTANEOUSLY [Concomitant]
  10. COENZYME Q10 [Concomitant]
     Active Substance: DIETARY SUPPLEMENT\UBIDECARENONE
  11. XOLAIR [Concomitant]
     Active Substance: OMALIZUMAB
  12. PROAIR HFA [Concomitant]
     Active Substance: ALBUTEROL SULFATE
  13. FLONASE [Concomitant]
     Active Substance: FLUTICASONE PROPIONATE

REACTIONS (7)
  - Headache [None]
  - Rhinorrhoea [None]
  - Throat tightness [None]
  - Swelling face [None]
  - Sinus pain [None]
  - Facial pain [None]
  - Throat irritation [None]

NARRATIVE: CASE EVENT DATE: 20210620
